FAERS Safety Report 6793979-4 (Version None)
Quarter: 2010Q2

REPORT INFORMATION
  Report Type: 
  Country: None (occurrence: None)
  Receive Date: 20100624
  Receipt Date: 20070321
  Transmission Date: 20101027
  Serious: No
  Sender: FDA-Public Use
  Company Number: US-PFIZER INC-ENC200700042

PATIENT
  Age: 78 Year
  Sex: Male

DRUGS (7)
  1. ARGATROBAN [Suspect]
     Indication: HEPARIN-INDUCED THROMBOCYTOPENIA
     Dosage: 0.75 MG/KG/MIN
     Route: 042
     Dates: start: 20070317
  2. METOCLOPRAMIDE [Concomitant]
  3. METOPROLOL [Concomitant]
  4. OMEPRAZOLE [Concomitant]
  5. WARFARIN SODIUM [Concomitant]
  6. VICODIN [Concomitant]
  7. PROMETHAZINE [Concomitant]

REACTIONS (2)
  - INFUSION SITE HAEMATOMA [None]
  - INFUSION SITE REACTION [None]
